FAERS Safety Report 9689302 (Version 2)
Quarter: 2013Q4

REPORT INFORMATION
  Report Type: Spontaneous
  Country: CA (occurrence: CA)
  Receive Date: 20131114
  Receipt Date: 20131114
  Transmission Date: 20140711
  Serious: Yes (Other)
  Sender: FDA-Public Use
  Company Number: CA-ABBVIE-13X-028-1103532-00

PATIENT
  Age: 58 Year
  Sex: Female
  Weight: 62 kg

DRUGS (9)
  1. NIASPAN (COATED) [Suspect]
     Indication: HYPERLIPIDAEMIA
     Dates: start: 20130516, end: 20130526
  2. DUOTRAV [Concomitant]
     Indication: PRODUCT USED FOR UNKNOWN INDICATION
     Dosage: 0.5/0.004% 1 GTT IN EYES, AT BEDTIME
  3. DICETEL [Concomitant]
     Indication: PRODUCT USED FOR UNKNOWN INDICATION
  4. QUINAPRIL HCL [Concomitant]
     Indication: PRODUCT USED FOR UNKNOWN INDICATION
     Dosage: EVERYDAY
     Route: 048
  5. SYNTHROID [Concomitant]
     Indication: PRODUCT USED FOR UNKNOWN INDICATION
     Dosage: EVERYDAY
  6. ESTROGENS CONJUGATED [Concomitant]
     Indication: PRODUCT USED FOR UNKNOWN INDICATION
     Dosage: LU:398 EVERYDAY
  7. PAXIL [Concomitant]
     Indication: PRODUCT USED FOR UNKNOWN INDICATION
     Dosage: EVERYDAY
  8. LOSEC [Concomitant]
     Indication: PRODUCT USED FOR UNKNOWN INDICATION
  9. ENDOCET [Concomitant]
     Indication: PRODUCT USED FOR UNKNOWN INDICATION
     Dosage: 5-325 MG 4 EVERYDAY 120/MONTH

REACTIONS (1)
  - Headache [Not Recovered/Not Resolved]
